FAERS Safety Report 11088046 (Version 1)
Quarter: 2015Q2

REPORT INFORMATION
  Report Type: Spontaneous
  Country: TR (occurrence: None)
  Receive Date: 20150430
  Receipt Date: 20150430
  Transmission Date: 20150821
  Serious: Yes (Life-Threatening, Hospitalization, Other)
  Sender: FDA-Public Use
  Company Number: 2015JUB00112

PATIENT
  Age: 28 Year
  Sex: Female

DRUGS (1)
  1. BUPROPION [Suspect]
     Active Substance: BUPROPION
     Indication: MAJOR DEPRESSION

REACTIONS (4)
  - Intentional overdose [None]
  - Toxicity to various agents [None]
  - Supraventricular tachycardia [None]
  - Suicide attempt [None]
